FAERS Safety Report 5114581-6 (Version None)
Quarter: 2006Q3

REPORT INFORMATION
  Report Type: 
  Country: None (occurrence: None)
  Receive Date: 20060922
  Receipt Date: 20060922
  Transmission Date: 20061208
  Serious: Yes (Hospitalization)
  Sender: FDA-Public Use
  Company Number: None

PATIENT
  Age: 79 Year
  Sex: Male
  Weight: 89.8122 kg

DRUGS (2)
  1. CARIMUNE [Suspect]
     Dosage: 36 GM   DAILY   IV
     Route: 042
     Dates: start: 20060914, end: 20060917
  2. GAMUNEX [Suspect]
     Dosage: 36 GM   AS DIRECTED   IV
     Route: 042
     Dates: start: 20060908, end: 20060918

REACTIONS (1)
  - RENAL FAILURE ACUTE [None]
